FAERS Safety Report 8637659 (Version 3)
Quarter: 2012Q4

REPORT INFORMATION
  Report Type: 
  Country: US (occurrence: US)
  Receive Date: 20120627
  Receipt Date: 20121025
  Transmission Date: 20130627
  Serious: Yes (Death, Other)
  Sender: FDA-Public Use
  Company Number: PHEH2012US012634

PATIENT
  Age: 75 Year
  Sex: Male
  Weight: 77.3 kg

DRUGS (1)
  1. ZOMETA [Suspect]
     Indication: MULTIPLE MYELOMA
     Dosage: 1 DF, every 4 weeks
     Route: 042
     Dates: start: 20120425, end: 20120425

REACTIONS (4)
  - Malignant melanoma [Fatal]
  - Second primary malignancy [Fatal]
  - Pain [Unknown]
  - Bone lesion [Unknown]
